FAERS Safety Report 6051788-8 (Version None)
Quarter: 2009Q1

REPORT INFORMATION
  Report Type: 
  Country: None (occurrence: None)
  Receive Date: 20090126
  Receipt Date: 20090115
  Transmission Date: 20090719
  Serious: Yes (Hospitalization)
  Sender: FDA-Public Use
  Company Number: PHEH2009US00833

PATIENT
  Sex: Male

DRUGS (1)
  1. TYZEKA [Suspect]
     Indication: HEPATITIS B
     Dosage: UNK
     Dates: start: 20080801

REACTIONS (1)
  - STEM CELL TRANSPLANT [None]
